FAERS Safety Report 10038051 (Version 2)
Quarter: 2015Q1

REPORT INFORMATION
  Report Type: Spontaneous
  Country: FR (occurrence: FR)
  Receive Date: 20140326
  Receipt Date: 20150305
  Transmission Date: 20150720
  Serious: Yes (Other)
  Sender: FDA-Public Use
  Company Number: FR-TEVA-471015ISR

PATIENT
  Sex: Female

DRUGS (1)
  1. COPAXONE [Suspect]
     Active Substance: GLATIRAMER ACETATE
     Dosage: COPAXONE 20 MG/ML WITH THE AUTOJECT
     Route: 058
     Dates: start: 201005, end: 20140320

REACTIONS (5)
  - Secondary progressive multiple sclerosis [Unknown]
  - Balance disorder [Unknown]
  - Vertigo [Recovering/Resolving]
  - Multiple sclerosis relapse [Recovered/Resolved]
  - Gait disturbance [Not Recovered/Not Resolved]

NARRATIVE: CASE EVENT DATE: 2011
